FAERS Safety Report 15568474 (Version 1)
Quarter: 2018Q4

REPORT INFORMATION
  Report Type: Spontaneous
  Country: US (occurrence: US)
  Receive Date: 20181031
  Receipt Date: 20181031
  Transmission Date: 20190205
  Serious: Yes (Other)
  Sender: FDA-Public Use
  Company Number: US-INSYS THERAPEUTICS, INC-INS201810-000403

PATIENT
  Sex: Female

DRUGS (2)
  1. UNSPECIFIED NARCOTICS [Suspect]
     Active Substance: UNSPECIFIED INGREDIENT
  2. SUBSYS [Suspect]
     Active Substance: FENTANYL
     Indication: PAIN MANAGEMENT
     Route: 060

REACTIONS (2)
  - Injury [Unknown]
  - Drug dependence [Unknown]
